FAERS Safety Report 17782528 (Version 2)
Quarter: 2020Q2

REPORT INFORMATION
  Report Type: Spontaneous
  Country: JP (occurrence: JP)
  Receive Date: 20200514
  Receipt Date: 20200521
  Transmission Date: 20200714
  Serious: Yes (Other)
  Sender: FDA-Public Use
  Company Number: JP-PFIZER INC-2020184025

PATIENT
  Age: 78 Year
  Sex: Male
  Weight: 60.1 kg

DRUGS (6)
  1. CISPLATIN. [Suspect]
     Active Substance: CISPLATIN
     Indication: OESOPHAGEAL CANCER METASTATIC
     Dosage: 70 MG/M2, CYCLIC (DAY 1)
  2. DOCETAXEL. [Suspect]
     Active Substance: DOCETAXEL
     Indication: OESOPHAGEAL CANCER METASTATIC
     Dosage: 70 MG/M2, CYCLIC, (DAY 1)
  3. 5-FLUOROURACIL [FLUOROURACIL] [Suspect]
     Active Substance: FLUOROURACIL
     Indication: OESOPHAGEAL CANCER METASTATIC
     Dosage: 700 MG/M2, CYCLIC,(DAYS 1-5)
  4. CISPLATIN. [Suspect]
     Active Substance: CISPLATIN
     Dosage: 80 MG/M2, CYCLIC (80 MG/M2, (DAY 1, BI-WEEKLY) CYCLIC)
  5. DOCETAXEL. [Suspect]
     Active Substance: DOCETAXEL
     Dosage: 30 MG/M2, CYCLIC, (DAYS 1/15, BI-WEEKLY)
  6. 5-FLUOROURACIL [FLUOROURACIL] [Suspect]
     Active Substance: FLUOROURACIL
     Dosage: 800 MG/M2, CYCLIC, (DAYS 1-5, BI-WEEKLY)

REACTIONS (4)
  - Pneumonia aspiration [Unknown]
  - Neutropenia [Unknown]
  - Diarrhoea [Unknown]
  - Febrile neutropenia [Unknown]
